FAERS Safety Report 9383187 (Version 1)
Quarter: 2013Q3

REPORT INFORMATION
  Report Type: Spontaneous
  Country: US (occurrence: US)
  Receive Date: 20130704
  Receipt Date: 20130704
  Transmission Date: 20140515
  Serious: No
  Sender: FDA-Public Use
  Company Number: US-009507513-1307USA000956

PATIENT
  Sex: Female

DRUGS (2)
  1. SAPHRIS [Suspect]
     Indication: PSYCHOTIC DISORDER
     Dosage: 5MG DAILY IN AM; 10 MG DAILY LN PM
     Route: 060
  2. ALPRAZOLAM [Concomitant]

REACTIONS (1)
  - Amphetamines positive [Unknown]
